FAERS Safety Report 8398477 (Version 9)
Quarter: 2014Q4

REPORT INFORMATION
  Report Type: Report from Study
  Country: CA (occurrence: CA)
  Receive Date: 20120209
  Receipt Date: 20141128
  Transmission Date: 20150529
  Serious: Yes (Death, Hospitalization)
  Sender: FDA-Public Use
  Company Number: PHHY2012CA008611

PATIENT
  Age: 40 Year
  Sex: Female

DRUGS (2)
  1. SANDOSTATIN LAR DEPOT [Suspect]
     Active Substance: OCTREOTIDE ACETATE
     Dosage: 60 MG EVERY 2 WEEKS
     Route: 030
  2. SANDOSTATIN LAR DEPOT [Suspect]
     Active Substance: OCTREOTIDE ACETATE
     Indication: NEUROENDOCRINE TUMOUR
     Dosage: 30 MG EVERY 2 WEEKS
     Route: 030
     Dates: start: 20110901

REACTIONS (10)
  - Intestinal obstruction [Unknown]
  - Infection [Unknown]
  - Pain [Unknown]
  - Death [Fatal]
  - Pyrexia [Unknown]
  - Blister [Unknown]
  - Feeling abnormal [Unknown]
  - Peripheral swelling [Recovering/Resolving]
  - Abdominal distension [Unknown]
  - Obstruction [Unknown]

NARRATIVE: CASE EVENT DATE: 20140805
